FAERS Safety Report 5028837-9 (Version None)
Quarter: 2006Q2

REPORT INFORMATION
  Report Type: 
  Country: None (occurrence: None)
  Receive Date: 20060616
  Receipt Date: 20060511
  Transmission Date: 20061013
  Serious: Yes (Hospitalization)
  Sender: FDA-Public Use
  Company Number: DL2006243

PATIENT
  Age: 16 Year
  Sex: Female

DRUGS (2)
  1. MIFEPRISTONE TABLETS, 200 MG (DANCO LABS) [Suspect]
     Indication: ABORTION INDUCED
     Dosage: 200 MG, ORAL
     Route: 048
     Dates: start: 20051109
  2. MISOPROSTOL [Suspect]
     Dosage: 800 MCG, VAGINAL
     Route: 067
     Dates: start: 20051110

REACTIONS (7)
  - CHILLS [None]
  - LEUKOCYTOSIS [None]
  - NAUSEA [None]
  - PELVIC INFLAMMATORY DISEASE [None]
  - PELVIC PAIN [None]
  - PYREXIA [None]
  - VOMITING [None]
